FAERS Safety Report 5412621-8 (Version None)
Quarter: 2007Q3

REPORT INFORMATION
  Report Type: 
  Country: None (occurrence: None)
  Receive Date: 20070809
  Receipt Date: 20070725
  Transmission Date: 20080115
  Serious: Yes (Death)
  Sender: FDA-Public Use
  Company Number: 159256ISR

PATIENT
  Age: 75 Year
  Sex: Female

DRUGS (3)
  1. CARBAMAZEPINE [Suspect]
     Indication: BIPOLAR DISORDER
     Dosage: 400 MG (200 MG, 2 IN 1 D)
  2. SERTRALINE [Suspect]
     Indication: DEPRESSION
     Dosage: 100 MG (50 MG, 1 IN 12 HR)
  3. PERICIAZINE [Suspect]
     Dosage: 15 MG (5 MG, 1 IN 8 HR)

REACTIONS (4)
  - ACUTE RESPIRATORY DISTRESS SYNDROME [None]
  - MULTI-ORGAN FAILURE [None]
  - PULMONARY OEDEMA [None]
  - RESPIRATORY FAILURE [None]
